FAERS Safety Report 19862730 (Version 1)
Quarter: 2021Q3

REPORT INFORMATION
  Report Type: Spontaneous
  Country: AU (occurrence: US)
  Receive Date: 20210921
  Receipt Date: 20210921
  Transmission Date: 20211014
  Serious: No
  Sender: FDA-Public Use
  Company Number: AU-009507513-2109USA001915

PATIENT
  Age: 21 Year
  Sex: Male

DRUGS (6)
  1. SIVEXTRO [Suspect]
     Active Substance: TEDIZOLID PHOSPHATE
     Indication: BRONCHOPULMONARY ASPERGILLOSIS
  2. TIGECYCLINE. [Concomitant]
     Active Substance: TIGECYCLINE
  3. VORICONAZOLE. [Concomitant]
     Active Substance: VORICONAZOLE
  4. MEROPENEM;VABORBACTAM [Concomitant]
     Dosage: UNK
  5. SIVEXTRO [Suspect]
     Active Substance: TEDIZOLID PHOSPHATE
     Indication: MYCOBACTERIUM ABSCESSUS INFECTION
     Dosage: UNK
     Route: 048
  6. CLOFAZIMINE [Concomitant]
     Active Substance: CLOFAZIMINE
     Dosage: UNK

REACTIONS (1)
  - Product use in unapproved indication [Unknown]
